FAERS Safety Report 8543333-X (Version None)
Quarter: 2012Q3

REPORT INFORMATION
  Report Type: 
  Country: None (occurrence: None)
  Receive Date: 20120727
  Receipt Date: 20120719
  Transmission Date: 20120928
  Serious: Yes (Other)
  Sender: FDA-Public Use
  Company Number: US-US-EMD SERONO, INC.-7146126

PATIENT
  Sex: Female

DRUGS (7)
  1. BACLOFEN [Concomitant]
     Indication: MUSCLE SPASTICITY
  2. INSULIN PUMP [Concomitant]
     Indication: TYPE 1 DIABETES MELLITUS
  3. REBIF [Suspect]
     Route: 058
  4. UNSPECIFIED MEDICATION FOR BLADDER INCONTINENCE [Suspect]
  5. REBIF [Suspect]
     Route: 058
  6. UNSPECIFIED MEDICATION FOR BLADDER INCONTINENCE [Suspect]
     Indication: URINARY INCONTINENCE
  7. REBIF [Suspect]
     Indication: MULTIPLE SCLEROSIS
     Route: 058
     Dates: start: 20120604

REACTIONS (2)
  - NEUROGENIC BLADDER [None]
  - NEUTRALISING ANTIBODIES [None]
